FAERS Safety Report 18277467 (Version 3)
Quarter: 2021Q2

REPORT INFORMATION
  Report Type: Spontaneous
  Country: JP (occurrence: JP)
  Receive Date: 20200917
  Receipt Date: 20210517
  Transmission Date: 20210717
  Serious: Yes (Hospitalization, Disabling, Other)
  Sender: FDA-Public Use
  Company Number: JP-009507513-2004JPN001862J

PATIENT
  Age: 78 Year
  Sex: Female
  Weight: 47 kg

DRUGS (5)
  1. VIVIANT [Concomitant]
     Active Substance: BAZEDOXIFENE
     Indication: OSTEOPOROSIS
     Dosage: 20 MILLIGRAM, QD
     Route: 048
  2. EDIROL [Concomitant]
     Active Substance: ELDECALCITOL
     Indication: OSTEOPOROSIS
     Dosage: 0.5 MICROGRAM, QD
     Route: 048
  3. CISPLATIN. [Suspect]
     Active Substance: CISPLATIN
     Indication: GINGIVAL CANCER
     Dosage: 64 MILLIGRAM/SQ. METER, Q3W
     Route: 041
     Dates: start: 20200325, end: 20200710
  4. KEYTRUDA [Suspect]
     Active Substance: PEMBROLIZUMAB
     Indication: GINGIVAL CANCER
     Dosage: 200 MILLIGRAM, Q3W
     Route: 041
     Dates: start: 20200325
  5. FLUOROURACIL. [Suspect]
     Active Substance: FLUOROURACIL
     Indication: GINGIVAL CANCER
     Dosage: 266 MILLIGRAM/SQ. METER, Q3W
     Route: 041
     Dates: start: 20200325, end: 20200710

REACTIONS (6)
  - Myelosuppression [Recovered/Resolved]
  - Diabetes mellitus [Recovered/Resolved]
  - Adrenal insufficiency [Not Recovered/Not Resolved]
  - Tumour pseudoprogression [Recovered/Resolved]
  - Myelosuppression [Recovered/Resolved]
  - Decreased immune responsiveness [Recovering/Resolving]

NARRATIVE: CASE EVENT DATE: 2020
